FAERS Safety Report 17753394 (Version 3)
Quarter: 2020Q2

REPORT INFORMATION
  Report Type: Spontaneous
  Country: ES (occurrence: ES)
  Receive Date: 20200507
  Receipt Date: 20200622
  Transmission Date: 20200714
  Serious: Yes (Other)
  Sender: FDA-Public Use
  Company Number: ES-AUROBINDO-AUR-APL-2020-021569

PATIENT
  Age: 78 Year
  Sex: Male
  Weight: 75 kg

DRUGS (14)
  1. SIMVASTATIN. [Concomitant]
     Active Substance: SIMVASTATIN
     Indication: PRODUCT USED FOR UNKNOWN INDICATION
     Dosage: UNK
     Route: 065
  2. AZITHROMYCIN ANHYDROUS. [Suspect]
     Active Substance: AZITHROMYCIN ANHYDROUS
     Indication: CORONAVIRUS INFECTION
     Dosage: UNK,NOT SPECIFIED
     Route: 065
  3. MANIDON HTA [Concomitant]
     Active Substance: VERAPAMIL HYDROCHLORIDE
     Indication: PRODUCT USED FOR UNKNOWN INDICATION
     Dosage: UNK
     Route: 065
  4. KALPRESS [Concomitant]
     Active Substance: VALSARTAN
     Indication: PRODUCT USED FOR UNKNOWN INDICATION
     Dosage: UNK
     Route: 065
  5. OMNIC OCAS [Concomitant]
     Active Substance: TAMSULOSIN HYDROCHLORIDE
     Indication: PRODUCT USED FOR UNKNOWN INDICATION
     Dosage: UNK
     Route: 065
  6. CEFTRIAXONE. [Suspect]
     Active Substance: CEFTRIAXONE
     Indication: CORONAVIRUS INFECTION
     Dosage: UNK,NOT SPECIFIED
     Route: 065
     Dates: start: 20200330
  7. PROPOFOL. [Suspect]
     Active Substance: PROPOFOL
     Indication: ANALGESIC THERAPY
     Dosage: UNK
     Route: 065
     Dates: start: 20200328
  8. KALETRA [Suspect]
     Active Substance: LOPINAVIR\RITONAVIR
     Indication: CORONAVIRUS INFECTION
     Dosage: UNK
     Route: 048
     Dates: start: 20200330
  9. MIDAZOLAM. [Suspect]
     Active Substance: MIDAZOLAM
     Indication: CORONAVIRUS INFECTION
     Dosage: UNK
     Route: 065
     Dates: start: 20200328
  10. PROPOFOL. [Suspect]
     Active Substance: PROPOFOL
     Indication: CORONAVIRUS INFECTION
  11. RILAST [Concomitant]
     Active Substance: BUDESONIDE\FORMOTEROL
     Indication: PRODUCT USED FOR UNKNOWN INDICATION
     Dosage: UNK
     Route: 065
  12. CORTIC [Concomitant]
     Indication: CORONAVIRUS INFECTION
     Dosage: UNK,LOW DOSE CORTICOIDS
     Route: 065
     Dates: start: 20200328
  13. MIDAZOLAM. [Suspect]
     Active Substance: MIDAZOLAM
     Indication: ANALGESIC THERAPY
  14. DOLQUINE [Suspect]
     Active Substance: HYDROXYCHLOROQUINE SULFATE
     Indication: CORONAVIRUS INFECTION
     Dosage: 200 MILLIGRAM, TWO TIMES A DAY (A COMPRESSED BREAKFAST AND DINNE)
     Route: 048
     Dates: start: 20200328, end: 20200331

REACTIONS (3)
  - Product use in unapproved indication [Unknown]
  - Bradycardia [Recovered/Resolved]
  - Long QT syndrome [Recovered/Resolved]

NARRATIVE: CASE EVENT DATE: 20200331
